FAERS Safety Report 14900970 (Version 1)
Quarter: 2018Q2

REPORT INFORMATION
  Report Type: Spontaneous
  Country: FR (occurrence: FR)
  Receive Date: 20180516
  Receipt Date: 20180516
  Transmission Date: 20180711
  Serious: Yes (Life-Threatening, Other)
  Sender: FDA-Public Use
  Company Number: FR-GLAXOSMITHKLINE-FR2018084993

PATIENT
  Age: 53 Year
  Sex: Female

DRUGS (13)
  1. CEFTRIAXONE SODIUM. [Suspect]
     Active Substance: CEFTRIAXONE SODIUM
     Indication: ALLERGY TEST
     Dosage: UNK
     Route: 023
  2. CEFAZOLIN [Suspect]
     Active Substance: CEFAZOLIN
     Indication: ALLERGY TEST
     Dosage: UNK
     Route: 023
  3. CEFIXIME. [Suspect]
     Active Substance: CEFIXIME
     Indication: ALLERGY TEST
     Dosage: IN TOTAL
     Route: 048
     Dates: start: 20180328, end: 20180328
  4. PIPERACILLIN SODIUM [Suspect]
     Active Substance: PIPERACILLIN SODIUM
     Indication: ALLERGY TEST
     Dosage: UNK
     Route: 023
  5. TAZOBACTAM [Suspect]
     Active Substance: TAZOBACTAM
     Indication: ALLERGY TEST
     Dosage: UNK
     Route: 023
  6. CEFUROXIME. [Suspect]
     Active Substance: CEFUROXIME
     Indication: ALLERGY TEST
     Dosage: UNK
     Route: 023
  7. CEFOTAXIME SODIUM [Suspect]
     Active Substance: CEFOTAXIME SODIUM
     Indication: ALLERGY TEST
     Dosage: UNK
     Route: 023
  8. FLUOXETINE [Concomitant]
     Active Substance: FLUOXETINE HYDROCHLORIDE
     Indication: PRODUCT USED FOR UNKNOWN INDICATION
     Dosage: UNK
     Route: 065
  9. PENICILLINE G (BENZYLPENICILLIN) [Suspect]
     Active Substance: PENICILLIN G
     Indication: ALLERGY TEST
     Dosage: UNK
     Route: 023
  10. SERESTA [Concomitant]
     Active Substance: OXAZEPAM
     Indication: PRODUCT USED FOR UNKNOWN INDICATION
     Dosage: UNK
     Route: 065
  11. AMOXICILLINE [Suspect]
     Active Substance: AMOXICILLIN
     Indication: ALLERGY TEST
     Dosage: UNK
     Route: 065
  12. MONOCRIXO [Concomitant]
     Active Substance: TRAMADOL HYDROCHLORIDE
     Indication: PRODUCT USED FOR UNKNOWN INDICATION
     Dosage: UNK
     Route: 065
  13. CLOXACILLIN [Suspect]
     Active Substance: CLOXACILLIN
     Indication: ALLERGY TEST
     Dosage: UNK
     Route: 023

REACTIONS (1)
  - Angioedema [Recovered/Resolved]

NARRATIVE: CASE EVENT DATE: 20180328
